FAERS Safety Report 12341559 (Version 3)
Quarter: 2016Q2

REPORT INFORMATION
  Report Type: Report from Study
  Country: US (occurrence: US)
  Receive Date: 20160506
  Receipt Date: 20160630
  Transmission Date: 20160815
  Serious: Yes (Hospitalization)
  Sender: FDA-Public Use
  Company Number: US-PFIZER INC-2016236790

PATIENT
  Age: 68 Year
  Sex: Male
  Weight: 87.1 kg

DRUGS (14)
  1. SYNTHROID [Concomitant]
     Active Substance: LEVOTHYROXINE SODIUM
     Indication: HYPOTHYROIDISM
     Dosage: UNK
     Dates: start: 2015
  2. TRC105 [Suspect]
     Active Substance: INVESTIGATIONAL PRODUCT
     Indication: CLEAR CELL RENAL CELL CARCINOMA
     Dosage: INJECTION, IV, 10 MG/KG (3 MG/KG ON DAY 1 AND THE REMAINING 7 MG/KG ON DAY 4), WEEKLY, 28 DAY CYCLES
     Route: 042
     Dates: start: 20160202, end: 20160419
  3. GLIPIZIDE XL [Concomitant]
     Active Substance: GLIPIZIDE
     Indication: TYPE 2 DIABETES MELLITUS
     Dosage: UNK
  4. METFORMIN [Concomitant]
     Active Substance: METFORMIN HYDROCHLORIDE
     Indication: TYPE 2 DIABETES MELLITUS
     Dosage: UNK
  5. LUPRON [Concomitant]
     Active Substance: LEUPROLIDE ACETATE
     Indication: PROSTATE CANCER
     Dosage: UNK
     Dates: start: 20151214
  6. MIRACLE MINERAL SOLUTION [Concomitant]
     Active Substance: SODIUM CHLORITE
     Indication: ORAL DISORDER
     Dosage: UNK
     Dates: start: 20160316
  7. AXITINIB [Suspect]
     Active Substance: AXITINIB
     Indication: CLEAR CELL RENAL CELL CARCINOMA
     Dosage: PILL, ORAL, 5MG, TWICE DAILY, 28 DAY CYCLES
     Route: 048
     Dates: start: 20160202, end: 20160426
  8. COLACE [Concomitant]
     Active Substance: DOCUSATE SODIUM
     Indication: CONSTIPATION
     Dosage: UNK
  9. JANUVIA [Concomitant]
     Active Substance: SITAGLIPTIN PHOSPHATE
     Indication: TYPE 2 DIABETES MELLITUS
     Dosage: UNK
  10. NYSTATIN. [Concomitant]
     Active Substance: NYSTATIN
     Indication: ORAL DISORDER
     Dosage: UNK
     Dates: start: 20160328
  11. AMLODIPINE BENAZEPRIL [Concomitant]
     Active Substance: AMLODIPINE BESYLATE\BENAZEPRIL HYDROCHLORIDE
     Indication: HYPERTENSION
     Dosage: UNK
  12. LEXAPRO [Concomitant]
     Active Substance: ESCITALOPRAM OXALATE
     Indication: DEPRESSION
     Dosage: UNK
  13. SALINE /00075401/ [Concomitant]
     Active Substance: SODIUM CHLORIDE
     Indication: EPISTAXIS
     Dosage: UNK (NOSE SPRAY)
     Route: 055
     Dates: start: 20160202
  14. METOPROLOL. [Concomitant]
     Active Substance: METOPROLOL
     Indication: HYPERTENSION
     Dosage: UNK

REACTIONS (3)
  - Acute kidney injury [Recovered/Resolved]
  - Hyperkalaemia [Recovered/Resolved]
  - Pulmonary embolism [Not Recovered/Not Resolved]

NARRATIVE: CASE EVENT DATE: 20160426
